FAERS Safety Report 5761648-5 (Version None)
Quarter: 2008Q2

REPORT INFORMATION
  Report Type: 
  Country: None (occurrence: None)
  Receive Date: 20080606
  Receipt Date: 20080219
  Transmission Date: 20081010
  Serious: Yes (Hospitalization)
  Sender: FDA-Public Use
  Company Number: US-PFIZER INC-2008007613

PATIENT
  Sex: Male
  Weight: 133 kg

DRUGS (1)
  1. SUTENT [Suspect]
     Indication: COLON CANCER
     Dosage: DAILY DOSE:25MG
     Route: 048

REACTIONS (1)
  - SMALL INTESTINAL OBSTRUCTION [None]
